FAERS Safety Report 11390799 (Version 1)
Quarter: 2015Q3

REPORT INFORMATION
  Report Type: Spontaneous
  Country: US (occurrence: US)
  Receive Date: 20150818
  Receipt Date: 20150818
  Transmission Date: 20151125
  Serious: No
  Sender: FDA-Public Use
  Company Number: US-ROCHE-1412165

PATIENT
  Sex: Male

DRUGS (3)
  1. SOVALDI [Suspect]
     Active Substance: SOFOSBUVIR
     Indication: CHRONIC HEPATITIS C
     Route: 065
     Dates: start: 20140411
  2. RIBAVIRIN. [Suspect]
     Active Substance: RIBAVIRIN
     Indication: CHRONIC HEPATITIS C
     Dosage: TEVA PHARMACEUTICALS BRAND, 1000 MG DIVIDED DOSES ORALLY 400/600
     Route: 048
     Dates: start: 20131007
  3. PEGASYS [Suspect]
     Active Substance: PEGINTERFERON ALFA-2A
     Indication: CHRONIC HEPATITIS C
     Dosage: PRE-FILLED SYRINGE
     Route: 058
     Dates: start: 20131007

REACTIONS (6)
  - Memory impairment [Unknown]
  - Stomatitis [Unknown]
  - Dry mouth [Unknown]
  - Denture wearer [Unknown]
  - Depression [Unknown]
  - Feeding disorder [Unknown]
